FAERS Safety Report 21739779 (Version 1)
Quarter: 2022Q4

REPORT INFORMATION
  Report Type: Spontaneous
  Country: GB (occurrence: GB)
  Receive Date: 20221216
  Receipt Date: 20221216
  Transmission Date: 20230113
  Serious: Yes (Other)
  Sender: FDA-Public Use
  Company Number: GB-LDELTA-NLLD0038619

PATIENT
  Age: 61 Year
  Sex: Female

DRUGS (2)
  1. FLUOXETINE [Interacting]
     Active Substance: FLUOXETINE HYDROCHLORIDE
     Indication: Product used for unknown indication
     Route: 065
  2. CLOZAPINE [Interacting]
     Active Substance: CLOZAPINE
     Indication: Schizophrenia
     Dosage: THERAPY END DATE : NOT ASKED
     Route: 065
     Dates: start: 20190211

REACTIONS (2)
  - Antipsychotic drug level increased [Not Recovered/Not Resolved]
  - Drug interaction [Not Recovered/Not Resolved]
